FAERS Safety Report 7722996-2 (Version None)
Quarter: 2011Q3

REPORT INFORMATION
  Report Type: 
  Country: None (occurrence: None)
  Receive Date: 20110826
  Receipt Date: 20110810
  Transmission Date: 20111222
  Serious: Yes (Hospitalization)
  Sender: FDA-Public Use
  Company Number: USA/USA/11/0020758

PATIENT
  Age: 81 Year
  Sex: Female
  Weight: 62.4 kg

DRUGS (4)
  1. NEXIUM [Concomitant]
  2. AUGMENTIN '875' [Suspect]
     Indication: PRODUCT USED FOR UNKNOWN INDICATION
     Dosage: 875, 25MG, 2X/DAY, ORAL
     Route: 048
     Dates: start: 20110524, end: 20110603
  3. STUDY THERAPY (CELECOXIB;IBUPROFEN/NAPROXEN;PLACEBO)(BLINDED) [Suspect]
     Indication: OSTEOARTHRITIS
     Dates: start: 20080320, end: 20110604
  4. STUDY THERAPY (CELECOXIB;IBUPROFEN/NAPROXEN;PLACEBO)(BLINDED) [Suspect]
     Indication: RHEUMATOID ARTHRITIS
     Dates: start: 20080320, end: 20110604

REACTIONS (2)
  - OSTEOARTHRITIS [None]
  - CLOSTRIDIAL INFECTION [None]
